FAERS Safety Report 18384722 (Version 4)
Quarter: 2021Q2

REPORT INFORMATION
  Report Type: Spontaneous
  Country: US (occurrence: US)
  Receive Date: 20201015
  Receipt Date: 20210531
  Transmission Date: 20210717
  Serious: Yes (Congenital Anomaly, Other)
  Sender: FDA-Public Use
  Company Number: NVSC2020US275989

PATIENT
  Sex: Female

DRUGS (3)
  1. ZOFRAN [Suspect]
     Active Substance: ONDANSETRON HYDROCHLORIDE
     Indication: FOETAL EXPOSURE DURING PREGNANCY
     Route: 064
  2. ONDANSETRON [Suspect]
     Active Substance: ONDANSETRON
     Indication: FOETAL EXPOSURE DURING PREGNANCY
     Dosage: MOTHER DOSE: 1 DF, BID
     Route: 064
  3. ZOFRAN ODT [Suspect]
     Active Substance: ONDANSETRON HYDROCHLORIDE
     Indication: FOETAL EXPOSURE DURING PREGNANCY
     Dosage: MOTHER DOSE: 04 MG, PRN
     Route: 064

REACTIONS (21)
  - Cardiac asthma [Unknown]
  - Neonatal hypoxia [Unknown]
  - Foetal exposure during pregnancy [Unknown]
  - Palpitations [Unknown]
  - Injury [Unknown]
  - Tricuspid valve incompetence [Unknown]
  - Cardiomegaly [Unknown]
  - Cyanosis [Unknown]
  - Seizure [Unknown]
  - Hyperhidrosis [Unknown]
  - Atrial septal defect [Unknown]
  - Mitral valve incompetence [Unknown]
  - Pain [Unknown]
  - Postoperative respiratory distress [Unknown]
  - Ventricular septal defect [Unknown]
  - Heart disease congenital [Unknown]
  - Right ventricular dilatation [Unknown]
  - Atrioventricular septal defect [Unknown]
  - Mitral valve stenosis [Unknown]
  - Cardiac murmur [Unknown]
  - Snoring [Unknown]
